FAERS Safety Report 10390945 (Version 1)
Quarter: 2014Q3

REPORT INFORMATION
  Report Type: Spontaneous
  Country: BR (occurrence: BR)
  Receive Date: 20140818
  Receipt Date: 20140818
  Transmission Date: 20150326
  Serious: Yes (Other)
  Sender: FDA-Public Use
  Company Number: BR-BRISTOL-MYERS SQUIBB COMPANY-21289970

PATIENT
  Age: 53 Year
  Sex: Female
  Weight: 72 kg

DRUGS (10)
  1. PYRIDOXINE [Concomitant]
     Active Substance: PYRIDOXINE
     Indication: OSTEOARTHRITIS
  2. PYRIDOXINE [Concomitant]
     Active Substance: PYRIDOXINE
     Indication: TENDONITIS
  3. GLUCOSAMINE [Concomitant]
     Active Substance: GLUCOSAMINE
     Indication: TENDONITIS
  4. PYRIDOXINE [Concomitant]
     Active Substance: PYRIDOXINE
     Indication: ARTHRITIS
  5. DIAMICRON [Concomitant]
     Active Substance: GLICLAZIDE
     Dosage: MR
  6. GLIFAGE XR [Suspect]
     Active Substance: METFORMIN HYDROCHLORIDE
     Indication: DIABETES MELLITUS
     Route: 048
     Dates: start: 201402
  7. GLUCOSAMINE [Concomitant]
     Active Substance: GLUCOSAMINE
     Indication: OSTEOARTHRITIS
  8. GLUCOSAMINE [Concomitant]
     Active Substance: GLUCOSAMINE
     Indication: ARTHRITIS
  9. SITAGLIPTIN PHOSPHATE [Suspect]
     Active Substance: SITAGLIPTIN PHOSPHATE
     Indication: DIABETES MELLITUS
     Route: 048
     Dates: start: 201402, end: 20140731
  10. LOSARTAN POTASSIUM. [Concomitant]
     Active Substance: LOSARTAN POTASSIUM

REACTIONS (7)
  - Nausea [Recovering/Resolving]
  - Insomnia [Recovering/Resolving]
  - Faeces soft [Not Recovered/Not Resolved]
  - Hypertension [Recovered/Resolved]
  - Blood glucose increased [Unknown]
  - Frequent bowel movements [Not Recovered/Not Resolved]
  - Headache [Recovering/Resolving]

NARRATIVE: CASE EVENT DATE: 201407
